FAERS Safety Report 8559992-1 (Version None)
Quarter: 2012Q3

REPORT INFORMATION
  Report Type: 
  Country: None (occurrence: None)
  Receive Date: 20120802
  Receipt Date: 20120725
  Transmission Date: 20120928
  Serious: Yes (Life-Threatening)
  Sender: FDA-Public Use
  Company Number: JO-SANOFI-AVENTIS-2012SA042180

PATIENT
  Age: 48 Year
  Sex: Female
  Weight: 60 kg

DRUGS (5)
  1. MORPHINE SULFATE [Concomitant]
     Indication: PAIN
     Dosage: DOSE: PCA (PATIENT CONTROLLED ANALGESIA)
     Route: 042
  2. CEFTRIAXONE [Concomitant]
     Route: 065
  3. METOCLOPRAMIDE HYDROCHLORIDE [Concomitant]
     Indication: NAUSEA
     Route: 042
  4. ENOXAPARIN SODIUM [Suspect]
     Indication: PROPHYLAXIS
     Route: 058
     Dates: start: 20120520, end: 20120520
  5. ACETAMINOPHEN [Concomitant]
     Indication: PAIN
     Route: 042

REACTIONS (4)
  - DIZZINESS [None]
  - HYPOTENSION [None]
  - SUPRAVENTRICULAR TACHYCARDIA [None]
  - PALPITATIONS [None]
